FAERS Safety Report 7634490-8 (Version None)
Quarter: 2011Q3

REPORT INFORMATION
  Report Type: 
  Country: None (occurrence: None)
  Receive Date: 20110725
  Receipt Date: 20110712
  Transmission Date: 20111222
  Serious: Yes (Hospitalization)
  Sender: FDA-Public Use
  Company Number: PHFR2011GB04215

PATIENT
  Age: 28 Year
  Sex: Male

DRUGS (4)
  1. DICLOFENAC SODIUM [Suspect]
     Indication: GOUT
     Dosage: 50 MG, TID
     Route: 048
     Dates: start: 20060701, end: 20110706
  2. ALLOPURINOL [Concomitant]
     Route: 065
  3. ACETAMINOPHEN [Suspect]
     Indication: PAIN
     Dosage: 1 G, UNK
     Route: 048
     Dates: start: 20060701, end: 20110706
  4. CITALOPRAM HYDROBROMIDE [Concomitant]
     Route: 065

REACTIONS (13)
  - ACUTE HEPATIC FAILURE [None]
  - VOMITING [None]
  - PROTHROMBIN TIME PROLONGED [None]
  - BLOOD BILIRUBIN INCREASED [None]
  - THROMBOSIS [None]
  - BLOOD ALBUMIN INCREASED [None]
  - BLOOD ALKALINE PHOSPHATASE INCREASED [None]
  - CONJUNCTIVAL HAEMORRHAGE [None]
  - HEPATITIS ACUTE [None]
  - LIVER FUNCTION TEST ABNORMAL [None]
  - ALANINE AMINOTRANSFERASE INCREASED [None]
  - ASPARTATE AMINOTRANSFERASE INCREASED [None]
  - INTERNATIONAL NORMALISED RATIO INCREASED [None]
